FAERS Safety Report 4333045-0 (Version None)
Quarter: 2004Q1

REPORT INFORMATION
  Report Type: 
  Country: None (occurrence: None)
  Receive Date: 20040330
  Receipt Date: 20040311
  Transmission Date: 20041129
  Serious: Yes (Life-Threatening)
  Sender: FDA-Public Use
  Company Number: M04-INT-040

PATIENT
  Age: 46 Year
  Sex: Male
  Weight: 66 kg

DRUGS (5)
  1. INTEGRILIN [Suspect]
     Indication: ANGIOPLASTY
     Dosage: 2 MG/DL AND 75 MG/DL INTRAVENOUS (NOT OTHERWISE SPECIFIED)
     Route: 042
     Dates: start: 20040308
  2. ACTYLSALICYLIC ACID [Concomitant]
  3. CLOPIDOGREL [Concomitant]
  4. METOPROLOL [Concomitant]
  5. RAMIPRIL [Concomitant]

REACTIONS (5)
  - ANGINA PECTORIS [None]
  - HAEMATOCRIT DECREASED [None]
  - MYOCARDIAL INFARCTION [None]
  - POST PROCEDURAL COMPLICATION [None]
  - THROMBOSIS [None]
